FAERS Safety Report 24699795 (Version 1)
Quarter: 2024Q4

REPORT INFORMATION
  Report Type: Spontaneous
  Country: DE (occurrence: DE)
  Receive Date: 20241205
  Receipt Date: 20241205
  Transmission Date: 20250115
  Serious: Yes (Other)
  Sender: NOVARTIS
  Company Number: DE-002147023-NVSC2024DE230083

PATIENT
  Sex: Male
  Weight: 71 kg

DRUGS (2)
  1. PLUVICTO [Suspect]
     Active Substance: LUTETIUM LU-177 VIPIVOTIDE TETRAXETAN
     Indication: Hormone-refractory prostate cancer
     Dosage: UNK
     Route: 065
  2. PLUVICTO [Suspect]
     Active Substance: LUTETIUM LU-177 VIPIVOTIDE TETRAXETAN
     Dosage: UNK (POST 4 CYCLES)
     Route: 065
     Dates: start: 202402

REACTIONS (5)
  - Metastasis [Unknown]
  - Arteriosclerosis coronary artery [Unknown]
  - Pain [Unknown]
  - Arteriosclerosis [Unknown]
  - Lymphadenopathy [Unknown]
